FAERS Safety Report 6631818-2 (Version None)
Quarter: 2010Q1

REPORT INFORMATION
  Report Type: 
  Country: None (occurrence: None)
  Receive Date: 20100312
  Receipt Date: 20100311
  Transmission Date: 20100710
  Serious: Yes (Hospitalization, Other)
  Sender: FDA-Public Use
  Company Number: ES-ROCHE-605187

PATIENT
  Sex: Male
  Weight: 70 kg

DRUGS (20)
  1. BEVACIZUMAB [Suspect]
     Indication: GASTRIC CANCER
     Dosage: FREQUENCY: D1Q3W. FORM: INFUSION. THERAPY TEMPORARILY INTERRUPTED.
     Route: 042
     Dates: start: 20081205, end: 20081205
  2. CAPECITABINE [Suspect]
     Indication: GASTRIC CANCER
     Dosage: FREQUENCY: TWICE DAILY FOR 14 DAYS EVERY 3 WEEKS AS PER PROTOCOL. STRENGTH: 150 MG AND 300 MG
     Route: 048
     Dates: start: 20081205, end: 20081219
  3. CAPECITABINE [Suspect]
     Dosage: REDUCED DRUG REGIMEN.
     Route: 048
     Dates: start: 20090120
  4. CISPLATIN [Suspect]
     Indication: GASTRIC CANCER
     Dosage: TEMPORARILY INTERRUPTED. FREQUENCY: ON DAY 1 EVERY 3 WEEKS FOR 6 CYCLES. FORM : INFUSION
     Route: 042
     Dates: start: 20081205, end: 20081205
  5. CISPLATIN [Suspect]
     Dosage: REDUCED DRUG REGIMEN.
     Route: 042
     Dates: start: 20090120
  6. IPRATROPIUM BROMIDE [Concomitant]
  7. SYMBICORT [Concomitant]
  8. ESOMEPRAZOLE [Concomitant]
  9. IRBESARTAN [Concomitant]
     Dates: end: 20081222
  10. MANIDIPINE HYDROCHLORIDE [Concomitant]
     Dates: end: 20081222
  11. TARDYFERON [Concomitant]
  12. DEXAMETASON [Concomitant]
     Dates: start: 20081205
  13. GRANISETRON [Concomitant]
     Dates: start: 20081205
  14. FORTECORTIN [Concomitant]
     Dates: start: 20081219
  15. BUSCAPINA [Concomitant]
     Dates: start: 20081219
  16. PANTOPRAZOLE [Concomitant]
     Dates: start: 20081222, end: 20081222
  17. PANTOPRAZOLE [Concomitant]
     Dates: start: 20081223, end: 20090107
  18. GABAPENTIN [Concomitant]
     Dosage: TDD: 2 CAP, DRUG NAME REPORTED AS: GARBAPENTINE
     Dates: start: 20081222, end: 20090107
  19. TAZOCEL [Concomitant]
     Dates: start: 20081223, end: 20081223
  20. MEROPENEM [Concomitant]
     Dates: start: 20081223, end: 20081229

REACTIONS (9)
  - ANAEMIA [None]
  - ASTHENIA [None]
  - DIARRHOEA [None]
  - FEBRILE NEUTROPENIA [None]
  - MUCOSAL INFLAMMATION [None]
  - RENAL FAILURE [None]
  - SEPTIC SHOCK [None]
  - STOMATITIS [None]
  - STREPTOCOCCAL SEPSIS [None]
